FAERS Safety Report 8525343-1 (Version None)
Quarter: 2012Q3

REPORT INFORMATION
  Report Type: 
  Country: None (occurrence: None)
  Receive Date: 20120720
  Receipt Date: 20120719
  Transmission Date: 20120928
  Serious: Yes (Death)
  Sender: FDA-Public Use
  Company Number: PHFR2012GB003450

PATIENT
  Sex: Male

DRUGS (6)
  1. FLUOXETINE HCL [Concomitant]
     Indication: MOOD SWINGS
     Dosage: 40 MG, DAILY
     Route: 048
  2. AMLODIPINE [Concomitant]
     Indication: BLOOD PRESSURE INCREASED
     Dosage: 10 MG, DAILY
     Route: 048
     Dates: start: 20120201
  3. CLOZARIL [Suspect]
     Indication: SCHIZOPHRENIA, PARANOID TYPE
     Dosage: 200 MG, DAILY
     Route: 048
     Dates: start: 20021020
  4. AMISULPRIDE [Concomitant]
     Indication: PSYCHOTIC DISORDER
     Dosage: 200 MG, DAILY
     Route: 048
  5. LITHIUM CARBONATE [Concomitant]
     Indication: MOOD SWINGS
     Dosage: 1 G, DAILY
     Route: 048
  6. ATENOLOL [Concomitant]
     Indication: BLOOD PRESSURE INCREASED
     Dosage: 25 MG, DAILY
     Route: 048
     Dates: start: 20120201

REACTIONS (2)
  - HYPERTENSION [None]
  - DEATH [None]
